FAERS Safety Report 15387395 (Version 1)
Quarter: 2018Q3

REPORT INFORMATION
  Report Type: Spontaneous
  Country: GB (occurrence: GB)
  Receive Date: 20180914
  Receipt Date: 20180914
  Transmission Date: 20181010
  Serious: Yes (Hospitalization, Other)
  Sender: FDA-Public Use
  Company Number: GB-MYLANLABS-2018M1067098

PATIENT
  Age: 59 Year
  Sex: Male

DRUGS (37)
  1. POLYHEXAMETHYLENE BIGUANIDE HYDROCHLORIDE [Suspect]
     Active Substance: POLIHEXANIDE HYDROCHLORIDE
     Dosage: UNK, TWO HOURLY DAY ONLY
     Route: 065
  2. CHLORHEXIDINE [Suspect]
     Active Substance: CHLORHEXIDINE
     Dosage: UNK, DAY AND NIGHT
     Route: 065
  3. HEXAMIDINE [Concomitant]
     Active Substance: HEXAMIDINE
     Indication: ACANTHAMOEBA KERATITIS
     Dosage: 0.02 %, QID, 4 TIMES DAILY
  4. PRED FORTE [Concomitant]
     Active Substance: PREDNISOLONE ACETATE
     Indication: ACANTHAMOEBA KERATITIS
     Dosage: 4 DF, QD
     Route: 065
  5. VORICONAZOLE. [Suspect]
     Active Substance: VORICONAZOLE
     Dosage: 0.5 MICOGRAMS/ML, INTRACAMERAL
     Route: 050
  6. DEXAMETHASONE. [Suspect]
     Active Substance: DEXAMETHASONE
     Indication: PRODUCT USED FOR UNKNOWN INDICATION
     Dosage: 0.1 %, QID
     Route: 065
  7. MILTEFOSINE [Concomitant]
     Active Substance: MILTEFOSINE
     Indication: PROPHYLAXIS
     Dosage: 50 MG, TID, 2.5 MG/KG/DAY
     Route: 048
  8. GENTAMICIN. [Concomitant]
     Active Substance: GENTAMICIN
     Dosage: UNK, HOURLY DAY AND NIGHT
     Route: 065
  9. CHLORHEXIDINE [Suspect]
     Active Substance: CHLORHEXIDINE
     Indication: ACANTHAMOEBA KERATITIS
     Dosage: 0.2 %, UNK, 2 HOURLY.
  10. HEXAMIDINE [Concomitant]
     Active Substance: HEXAMIDINE
     Dosage: 0.1 %, UNK 2?HOURLY
     Route: 065
  11. CEFUROXIME. [Concomitant]
     Active Substance: CEFUROXIME
     Indication: ACANTHAMOEBA KERATITIS
     Dosage: 4 DF, QD
     Route: 065
  12. MILTEFOSINE [Concomitant]
     Active Substance: MILTEFOSINE
     Indication: ACANTHAMOEBA KERATITIS
     Dosage: UNK
  13. PREDNISOLONE. [Concomitant]
     Active Substance: PREDNISOLONE
     Indication: ACANTHAMOEBA KERATITIS
     Dosage: 4 DF, QID
     Route: 065
  14. POLYHEXAMETHYLENE BIGUANIDE HYDROCHLORIDE [Suspect]
     Active Substance: POLIHEXANIDE HYDROCHLORIDE
     Indication: ACANTHAMOEBA KERATITIS
     Dosage: 4 DF, QD
     Route: 065
  15. HEXAMIDINE [Concomitant]
     Active Substance: HEXAMIDINE
     Dosage: 0.1 %, UNK HOURLY
  16. HEXAMIDINE [Concomitant]
     Active Substance: HEXAMIDINE
     Dosage: 6 %, UNK, HOURLY DAY AND NIGHT
  17. VORICONAZOLE. [Suspect]
     Active Substance: VORICONAZOLE
     Dosage: 1 %, UNK, GUTTAE
     Route: 065
  18. VORICONAZOLE. [Suspect]
     Active Substance: VORICONAZOLE
     Dosage: 400 MG, BID
     Route: 065
  19. POSACONAZOLE [Suspect]
     Active Substance: POSACONAZOLE
     Indication: ACANTHAMOEBA KERATITIS
     Dosage: 300 MG, BID, LOADING DOSE
     Route: 048
  20. TACROLIMUS. [Concomitant]
     Active Substance: TACROLIMUS
     Indication: TRANSPLANT FAILURE
     Dosage: 1 MG, BID
     Route: 048
  21. HEXAMIDINE [Concomitant]
     Active Substance: HEXAMIDINE
     Dosage: UNK
  22. VORICONAZOLE. [Suspect]
     Active Substance: VORICONAZOLE
     Indication: PRODUCT USED FOR UNKNOWN INDICATION
     Dosage: 200 MG, BID
     Route: 065
  23. IMIDAZOLE [Concomitant]
     Active Substance: IMIDAZOLE
     Indication: ACANTHAMOEBA KERATITIS
     Dosage: UNK
     Route: 065
  24. CHLORHEXIDINE [Suspect]
     Active Substance: CHLORHEXIDINE
     Dosage: 0.02 %, HOURLY DAY AND NIGHT
     Route: 065
  25. PRED FORTE [Concomitant]
     Active Substance: PREDNISOLONE ACETATE
     Dosage: UNK, HOURLY
     Route: 065
  26. LEVOFLOXACIN. [Concomitant]
     Active Substance: LEVOFLOXACIN
     Dosage: UNK, TWO HOURLY DAY ONLY
     Route: 065
  27. LEVOFLOXACIN. [Concomitant]
     Active Substance: LEVOFLOXACIN
     Dosage: 0.5 %, UNK (REDUCED TO HOURLY DAYTIME ONLY)
     Route: 065
  28. METHYLPREDNISOLONE. [Concomitant]
     Active Substance: METHYLPREDNISOLONE
     Indication: ACANTHAMOEBA KERATITIS
     Dosage: 1 G, UNK
     Route: 042
  29. GENTAMICIN. [Concomitant]
     Active Substance: GENTAMICIN
     Indication: ACANTHAMOEBA KERATITIS
     Dosage: 4 DF, QID
     Route: 065
  30. DEXAMETHASONE. [Suspect]
     Active Substance: DEXAMETHASONE
     Dosage: 0.1 %, UNK
     Route: 065
  31. POLYHEXAMETHYLENE BIGUANIDE HYDROCHLORIDE [Suspect]
     Active Substance: POLIHEXANIDE HYDROCHLORIDE
     Dosage: UNK, HOURLY DAYTIME ONLY
     Route: 065
  32. POLYHEXAMETHYLENE BIGUANIDE HYDROCHLORIDE [Suspect]
     Active Substance: POLIHEXANIDE HYDROCHLORIDE
     Dosage: UNK, HOURLY DAY AND NIGHT
     Route: 065
  33. POLYHEXAMETHYLENE BIGUANIDE HYDROCHLORIDE [Suspect]
     Active Substance: POLIHEXANIDE HYDROCHLORIDE
     Dosage: UNK
  34. POSACONAZOLE [Suspect]
     Active Substance: POSACONAZOLE
     Dosage: 300 MG, OD
     Route: 048
  35. CHLORHEXIDINE [Suspect]
     Active Substance: CHLORHEXIDINE
     Dosage: 0.2 %, UNK, HOURLY
     Route: 065
  36. TACROLIMUS. [Concomitant]
     Active Substance: TACROLIMUS
     Dosage: UNK
  37. LEVOFLOXACIN. [Concomitant]
     Active Substance: LEVOFLOXACIN
     Indication: ACANTHAMOEBA KERATITIS
     Dosage: 0.5% HOURLY DAY AND NIGHT
     Route: 065

REACTIONS (4)
  - Adverse drug reaction [Unknown]
  - Condition aggravated [Unknown]
  - Acanthamoeba keratitis [Not Recovered/Not Resolved]
  - Drug ineffective for unapproved indication [Unknown]
